APPROVED DRUG PRODUCT: VALBENAZINE TOSYLATE
Active Ingredient: VALBENAZINE TOSYLATE
Strength: EQ 60MG BASE
Dosage Form/Route: CAPSULE;ORAL
Application: A216137 | Product #002
Applicant: ZYDUS LIFESCIENCES GLOBAL FZE
Approved: Aug 7, 2024 | RLD: No | RS: No | Type: DISCN